FAERS Safety Report 24739566 (Version 2)
Quarter: 2025Q2

REPORT INFORMATION
  Report Type: Spontaneous
  Country: US (occurrence: US)
  Receive Date: 20241216
  Receipt Date: 20250514
  Transmission Date: 20250717
  Serious: No
  Sender: SANOFI AVENTIS
  Company Number: US-SA-2024SA251532

PATIENT
  Age: 36 Year
  Sex: Male
  Weight: 69.388 kg

DRUGS (2)
  1. CERDELGA [Suspect]
     Active Substance: ELIGLUSTAT
     Indication: Gaucher^s disease
     Dosage: 84 MG, BID
     Route: 048
     Dates: start: 20230517
  2. TYLENOL [Concomitant]
     Active Substance: ACETAMINOPHEN
     Route: 065

REACTIONS (1)
  - Inappropriate schedule of product administration [Unknown]

NARRATIVE: CASE EVENT DATE: 20241204
